FAERS Safety Report 20358333 (Version 3)
Quarter: 2022Q4

REPORT INFORMATION
  Report Type: Spontaneous
  Country: IN (occurrence: IN)
  Receive Date: 20220120
  Receipt Date: 20221003
  Transmission Date: 20230113
  Serious: Yes (Other)
  Sender: FDA-Public Use
  Company Number: IN-PFIZER INC-202200037245

PATIENT
  Age: 73 Year
  Sex: Female
  Weight: 59 kg

DRUGS (6)
  1. PALBOCICLIB [Suspect]
     Active Substance: PALBOCICLIB
     Dosage: 125 MG,  21 DAYS/7 DAYS GAP
     Route: 048
     Dates: start: 20210529
  2. PALBOCICLIB [Suspect]
     Active Substance: PALBOCICLIB
     Dosage: 120 MG
     Dates: start: 202106
  3. FASLODEX [Concomitant]
     Active Substance: FULVESTRANT
     Dosage: UNK
     Dates: start: 20210727
  4. SHELCAL [CALCIUM CARBONATE;COLECALCIFEROL] [Concomitant]
     Dosage: UNK (1-0)
     Dates: start: 20210727
  5. BECOZINC [ASCORBIC ACID;CALCIUM PANTOTHENATE;FOLIC ACID;NICOTINAMIDE;P [Concomitant]
     Dosage: 10 ML (1-1)
     Dates: start: 20210727
  6. FULVESTRANT [Concomitant]
     Active Substance: FULVESTRANT
     Dosage: UNK
     Dates: start: 202106

REACTIONS (17)
  - Syncope [Unknown]
  - Haemoglobin decreased [Unknown]
  - Mass [Unknown]
  - Asthenia [Unknown]
  - Chest pain [Unknown]
  - Hyperhidrosis [Unknown]
  - Dizziness [Unknown]
  - Pyrexia [Unknown]
  - White blood cell count decreased [Unknown]
  - Red blood cell count decreased [Unknown]
  - Haematocrit decreased [Unknown]
  - Mean cell haemoglobin decreased [Unknown]
  - Red cell distribution width increased [Unknown]
  - Lymphocyte count decreased [Unknown]
  - Haematocrit decreased [Unknown]
  - Mean cell volume decreased [Unknown]
  - Malaise [Unknown]

NARRATIVE: CASE EVENT DATE: 20210727
